FAERS Safety Report 5712417-3 (Version None)
Quarter: 2008Q2

REPORT INFORMATION
  Report Type: 
  Country: None (occurrence: None)
  Receive Date: 20080422
  Receipt Date: 20080415
  Transmission Date: 20081010
  Serious: Yes (Hospitalization, Other)
  Sender: FDA-Public Use
  Company Number: PHHY2008BR05668

PATIENT
  Sex: Female

DRUGS (5)
  1. EXELON [Suspect]
     Indication: DEMENTIA ALZHEIMER'S TYPE
     Dosage: 1 CAPSULE DAILY
     Route: 048
     Dates: start: 20051001
  2. EXELON [Suspect]
     Dosage: 3 MG DAILY
     Route: 048
     Dates: start: 20060401
  3. EXELON [Suspect]
     Dosage: 6 MG DAILY
     Route: 048
     Dates: start: 20061001
  4. EXELON [Suspect]
     Dosage: 9 MG DAILY
     Route: 048
     Dates: start: 20070701
  5. RISPERIDONE [Concomitant]
     Indication: HALLUCINATION
     Dosage: 1 TAB AT NIGHT AND HALF TAB IN MORNING
     Route: 048

REACTIONS (9)
  - ABNORMAL BEHAVIOUR [None]
  - ANOREXIA [None]
  - DIARRHOEA [None]
  - DRUG INEFFECTIVE [None]
  - FALL [None]
  - NAUSEA [None]
  - SUTURE INSERTION [None]
  - VOMITING [None]
  - WEIGHT DECREASED [None]
